FAERS Safety Report 7162351-X (Version None)
Quarter: 2010Q4

REPORT INFORMATION
  Report Type: 
  Country: None (occurrence: None)
  Receive Date: 20101215
  Receipt Date: 20091016
  Transmission Date: 20110411
  Serious: Yes (Other)
  Sender: FDA-Public Use
  Company Number: DE-PFIZER INC-2009246326

PATIENT
  Age: 87 Year

DRUGS (10)
  1. LYRICA [Suspect]
     Dosage: 400 MG, 1X/DAY
     Route: 048
  2. GLIMEPIRIDE [Concomitant]
     Dosage: 1 MG, 1X/DAY
  3. ASPIRIN [Concomitant]
     Dosage: 100 MG, 1X/DAY
  4. FRESUBIN [Concomitant]
     Dosage: 500 ML, 2X/DAY
  5. METOCLOPRAMIDE [Concomitant]
  6. LACTULOSE [Concomitant]
     Dosage: 10 ML, ALTERNATE DAY
  7. FUROSEMIDE [Concomitant]
     Dosage: 20 MG, 2X/DAY
  8. PIPAMPERONE [Concomitant]
     Dosage: 10 ML, 1X/DAY
  9. FUCICORT [Concomitant]
  10. EVAZOL [Concomitant]

REACTIONS (2)
  - BLISTER [None]
  - SKIN EXFOLIATION [None]
